FAERS Safety Report 4483654-3 (Version None)
Quarter: 2004Q4

REPORT INFORMATION
  Report Type: 
  Country: None (occurrence: None)
  Receive Date: 20041022
  Receipt Date: 20041022
  Transmission Date: 20050328
  Serious: Yes (Hospitalization)
  Sender: FDA-Public Use
  Company Number: None

PATIENT
  Age: 44 Year
  Sex: Female
  Weight: 93.441 kg

DRUGS (6)
  1. XIFAXAN [Suspect]
     Dates: start: 20040909
  2. PROMETHAZINE [Concomitant]
  3. KETOROLAC [Concomitant]
  4. VICODAN ES [Concomitant]
  5. LEVOTHYROXINE SODIUM [Concomitant]
  6. SIMETHICONE [Concomitant]

REACTIONS (3)
  - FLUSHING [None]
  - PRURITUS [None]
  - SWOLLEN TONGUE [None]
